FAERS Safety Report 5448178-5 (Version None)
Quarter: 2007Q4

REPORT INFORMATION
  Report Type: 
  Country: None (occurrence: None)
  Receive Date: 20070905
  Receipt Date: 20070821
  Transmission Date: 20080405
  Serious: Yes (Hospitalization)
  Sender: FDA-Public Use
  Company Number: S07-AUT-03434-01

PATIENT
  Age: 28 Year
  Sex: Female

DRUGS (33)
  1. ESCITALOPRAM [Suspect]
     Indication: BIPOLAR DISORDER
     Dosage: 10 MG QD; PO
     Route: 048
     Dates: start: 20061102, end: 20061113
  2. ESCITALOPRAM [Suspect]
     Indication: PSYCHOTIC DISORDER
     Dosage: 10 MG QD; PO
     Route: 048
     Dates: start: 20061102, end: 20061113
  3. ESCITALOPRAM [Suspect]
     Indication: BIPOLAR DISORDER
     Dosage: 15 MG QD; PO
     Route: 048
     Dates: start: 20061114, end: 20061124
  4. ESCITALOPRAM [Suspect]
     Indication: PSYCHOTIC DISORDER
     Dosage: 15 MG QD; PO
     Route: 048
     Dates: start: 20061114, end: 20061124
  5. LORAZEPAM [Suspect]
     Indication: BIPOLAR DISORDER
     Dosage: 1.25 MG QD; PO
     Route: 048
     Dates: start: 20061109, end: 20061115
  6. LORAZEPAM [Suspect]
     Indication: PSYCHOTIC DISORDER
     Dosage: 1.25 MG QD; PO
     Route: 048
     Dates: start: 20061109, end: 20061115
  7. LORAZEPAM [Suspect]
     Indication: BIPOLAR DISORDER
     Dosage: 2.5 MG QD; PO
     Route: 048
     Dates: start: 20061102, end: 20061108
  8. LORAZEPAM [Suspect]
     Indication: PSYCHOTIC DISORDER
     Dosage: 2.5 MG QD; PO
     Route: 048
     Dates: start: 20061102, end: 20061108
  9. SEROQUEL [Suspect]
     Indication: BIPOLAR DISORDER
     Dosage: 500 MG QD; PO
     Route: 048
     Dates: start: 20061108, end: 20061114
  10. SEROQUEL [Suspect]
     Indication: PSYCHOTIC DISORDER
     Dosage: 500 MG QD; PO
     Route: 048
     Dates: start: 20061108, end: 20061114
  11. SEROQUEL [Suspect]
     Indication: BIPOLAR DISORDER
     Dosage: 600 MGQD; PO
     Route: 048
     Dates: start: 20061115, end: 20061115
  12. SEROQUEL [Suspect]
     Indication: PSYCHOTIC DISORDER
     Dosage: 600 MGQD; PO
     Route: 048
     Dates: start: 20061115, end: 20061115
  13. SEROQUEL [Suspect]
     Indication: BIPOLAR DISORDER
     Dosage: 500 MG QD; PO
     Route: 048
     Dates: start: 20061116, end: 20061116
  14. SEROQUEL [Suspect]
     Indication: PSYCHOTIC DISORDER
     Dosage: 500 MG QD; PO
     Route: 048
     Dates: start: 20061116, end: 20061116
  15. SEROQUEL [Suspect]
     Indication: BIPOLAR DISORDER
     Dosage: 400 MG QD; PO
     Route: 048
     Dates: start: 20061117, end: 20061118
  16. SEROQUEL [Suspect]
     Indication: PSYCHOTIC DISORDER
     Dosage: 400 MG QD; PO
     Route: 048
     Dates: start: 20061117, end: 20061118
  17. SEROQUEL [Suspect]
     Indication: BIPOLAR DISORDER
     Dosage: 350 MG QD; PO
     Route: 048
     Dates: start: 20061119, end: 20061119
  18. SEROQUEL [Suspect]
     Indication: PSYCHOTIC DISORDER
     Dosage: 350 MG QD; PO
     Route: 048
     Dates: start: 20061119, end: 20061119
  19. SEROQUEL [Suspect]
     Indication: BIPOLAR DISORDER
     Dosage: 300 MG QD; PO
     Route: 048
     Dates: start: 20061120, end: 20061120
  20. SEROQUEL [Suspect]
     Indication: PSYCHOTIC DISORDER
     Dosage: 300 MG QD; PO
     Route: 048
     Dates: start: 20061120, end: 20061120
  21. SEROQUEL [Suspect]
     Indication: BIPOLAR DISORDER
     Dosage: 200 MG QD; PO
     Route: 048
     Dates: start: 20061121, end: 20061121
  22. SEROQUEL [Suspect]
     Indication: PSYCHOTIC DISORDER
     Dosage: 200 MG QD; PO
     Route: 048
     Dates: start: 20061121, end: 20061121
  23. SEROQUEL [Suspect]
     Indication: AFFECTIVE DISORDER
     Dosage: 100 MG QD;PO
     Route: 048
     Dates: start: 20061127
  24. SEROQUEL [Suspect]
     Indication: PSYCHOTIC DISORDER
     Dosage: 100 MG QD;PO
     Route: 048
     Dates: start: 20061127
  25. SEROQUEL [Suspect]
     Indication: BIPOLAR DISORDER
     Dosage: 75 MG QD; PO
     Route: 048
     Dates: start: 20061102, end: 20061102
  26. SEROQUEL [Suspect]
     Indication: BIPOLAR DISORDER
     Dosage: 100 MG QD; PO
     Route: 048
     Dates: start: 20061103, end: 20061103
  27. SEROQUEL [Suspect]
     Indication: PSYCHOTIC DISORDER
     Dosage: 100 MG QD; PO
     Route: 048
     Dates: start: 20061103, end: 20061103
  28. SEROQUEL [Suspect]
     Indication: BIPOLAR DISORDER
     Dosage: 150 MG QD; PO
     Route: 048
     Dates: start: 20061104, end: 20061104
  29. SEROQUEL [Suspect]
     Indication: PSYCHOTIC DISORDER
     Dosage: 150 MG QD; PO
     Route: 048
     Dates: start: 20061104, end: 20061104
  30. SEROQUEL [Suspect]
     Indication: BIPOLAR DISORDER
     Dosage: 300 MG QD; PO
     Route: 048
     Dates: start: 20061106, end: 20061106
  31. SEROQUEL [Suspect]
     Indication: PSYCHOTIC DISORDER
     Dosage: 300 MG QD; PO
     Route: 048
     Dates: start: 20061106, end: 20061106
  32. SEROQUEL [Suspect]
     Indication: BIPOLAR DISORDER
     Dosage: 400MG QD PO
     Route: 048
     Dates: start: 20061108, end: 20061108
  33. SEROQUEL [Suspect]
     Indication: PSYCHOTIC DISORDER
     Dosage: 400MG QD PO
     Route: 048
     Dates: start: 20061108, end: 20061108

REACTIONS (3)
  - HYPOTONIA [None]
  - SYNCOPE [None]
  - VERTIGO [None]
